FAERS Safety Report 12446522 (Version 2)
Quarter: 2016Q3

REPORT INFORMATION
  Report Type: Spontaneous
  Country: US (occurrence: US)
  Receive Date: 20160608
  Receipt Date: 20160804
  Transmission Date: 20161109
  Serious: Yes (Other)
  Sender: FDA-Public Use
  Company Number: US-AUROBINDO-AUR-APL-2016-07372

PATIENT
  Age: 52 Year
  Sex: Female
  Weight: 53.52 kg

DRUGS (3)
  1. SERTRALINE HCL [Suspect]
     Active Substance: SERTRALINE HYDROCHLORIDE
     Indication: DEPRESSION
  2. BUPROPION. [Suspect]
     Active Substance: BUPROPION
     Dosage: 100 MG, ONCE A DAY
     Route: 048
     Dates: start: 20160509, end: 20160510
  3. SERTRALINE HCL [Suspect]
     Active Substance: SERTRALINE HYDROCHLORIDE
     Indication: STRESS
     Dosage: 50 MG, ONCE A DAY
     Route: 065
     Dates: start: 201601

REACTIONS (12)
  - Paraesthesia [Recovering/Resolving]
  - Aphasia [Recovered/Resolved]
  - Prosopagnosia [Recovered/Resolved]
  - Vertigo [Recovering/Resolving]
  - Nausea [Not Recovered/Not Resolved]
  - Feeling of body temperature change [Recovering/Resolving]
  - Feeling abnormal [Recovered/Resolved]
  - Suicidal ideation [Recovered/Resolved]
  - Muscle twitching [Recovering/Resolving]
  - Insomnia [Recovered/Resolved]
  - Influenza like illness [Recovered/Resolved]
  - Decreased appetite [Recovered/Resolved]

NARRATIVE: CASE EVENT DATE: 201601
